FAERS Safety Report 20532528 (Version 2)
Quarter: 2022Q1

REPORT INFORMATION
  Report Type: Spontaneous
  Country: PL (occurrence: PL)
  Receive Date: 20220301
  Receipt Date: 20220303
  Transmission Date: 20220423
  Serious: Yes (Other)
  Sender: FDA-Public Use
  Company Number: PL-PFIZER INC-202200325395

PATIENT
  Age: 15 Month
  Sex: Male

DRUGS (6)
  1. MEROPENEM [Suspect]
     Active Substance: MEROPENEM
     Indication: Infection
     Dosage: UNK
  2. FOSFOMYCIN [Suspect]
     Active Substance: FOSFOMYCIN
     Dosage: UNK
  3. FOSFOMYCIN [Suspect]
     Active Substance: FOSFOMYCIN
     Dosage: UNK
  4. AMIKACIN [Suspect]
     Active Substance: AMIKACIN
     Dosage: UNK
  5. TAUROSEPT [Concomitant]
     Dosage: UNK
  6. COLISTIN [Concomitant]
     Active Substance: COLISTIN
     Dosage: UNK

REACTIONS (1)
  - Drug ineffective [Unknown]
